FAERS Safety Report 8042572 (Version 2)
Quarter: 2013Q2

REPORT INFORMATION
  Report Type: Spontaneous
  Country: US (occurrence: US)
  Receive Date: 20110718
  Receipt Date: 20130524
  Transmission Date: 20140414
  Serious: Yes (Congenital Anomaly, Other)
  Sender: FDA-Public Use
  Company Number: US-PFIZER INC-2009295834

PATIENT
  Sex: Female
  Weight: 3.7 kg

DRUGS (3)
  1. EFFEXOR XR [Suspect]
     Indication: DEPRESSION
     Dosage: 75 MG, 1X/DAY
     Route: 064
     Dates: start: 2007
  2. EFFEXOR [Suspect]
     Dosage: UNK
     Route: 064
  3. VENLAFAXINE HCL [Suspect]
     Dosage: UNK
     Route: 064

REACTIONS (6)
  - Maternal exposure timing unspecified [Unknown]
  - Ventricular septal defect [Unknown]
  - Atrial septal defect [Unknown]
  - Patent ductus arteriosus [Unknown]
  - Large for dates baby [Unknown]
  - Congenital anomaly [Unknown]
